FAERS Safety Report 21046237 (Version 5)
Quarter: 2022Q3

REPORT INFORMATION
  Report Type: Report from Study
  Country: GB (occurrence: GB)
  Receive Date: 20220706
  Receipt Date: 20220728
  Transmission Date: 20221027
  Serious: Yes (Hospitalization, Other)
  Sender: FDA-Public Use
  Company Number: GB-CELLTRION INC.-2020GB035220

PATIENT

DRUGS (6)
  1. TRASTUZUMAB [Suspect]
     Active Substance: TRASTUZUMAB
     Indication: Breast cancer metastatic
     Dosage: 315 MILLIGRAM, Q3WK
     Route: 042
     Dates: start: 20190411
  2. TRASTUZUMAB [Suspect]
     Active Substance: TRASTUZUMAB
     Dosage: 315 MILLIGRAM, Q3WK
     Route: 042
     Dates: start: 20171121, end: 20180711
  3. PERTUZUMAB [Suspect]
     Active Substance: PERTUZUMAB
     Indication: Breast cancer metastatic
     Dosage: 420 MG EVERY 3 WEEKS (DOSE FORM: INFUSION, SOLUTION)
     Route: 042
     Dates: start: 20171121, end: 20180711
  4. ADO-TRASTUZUMAB EMTANSINE [Suspect]
     Active Substance: ADO-TRASTUZUMAB EMTANSINE
     Indication: Breast cancer metastatic
     Dosage: 160 MG, EVERY 3 WEEKS; DOSE FORM: INFUSION, SOLUTION
     Route: 042
     Dates: start: 20180828, end: 201902
  5. CAPECITABINE [Suspect]
     Active Substance: CAPECITABINE
     Indication: Breast cancer metastatic
     Dosage: 1450 MILLIGRAM
     Route: 048
     Dates: start: 20190411
  6. DOCETAXEL [Suspect]
     Active Substance: DOCETAXEL
     Indication: Breast cancer metastatic
     Dosage: 90 MILLIGRAM, Q3WK (6 CYCLES PER REGIMEN)
     Route: 042
     Dates: start: 20171121, end: 20180711

REACTIONS (2)
  - Pneumonia aspiration [Recovered/Resolved]
  - Off label use [Unknown]

NARRATIVE: CASE EVENT DATE: 20200101
